FAERS Safety Report 15623415 (Version 1)
Quarter: 2018Q4

REPORT INFORMATION
  Report Type: Spontaneous
  Country: US (occurrence: US)
  Receive Date: 20181115
  Receipt Date: 20181115
  Transmission Date: 20190205
  Serious: Yes (Disabling)
  Sender: FDA-Public Use
  Company Number: None

PATIENT
  Age: 53 Year
  Sex: Male
  Weight: 79.38 kg

DRUGS (1)
  1. MEFLOQUINE [Suspect]
     Active Substance: MEFLOQUINE
     Indication: MALARIA
     Route: 048
     Dates: start: 19980326

REACTIONS (5)
  - Balance disorder [None]
  - Syncope [None]
  - Vertigo [None]
  - Dizziness [None]
  - Night blindness [None]

NARRATIVE: CASE EVENT DATE: 20180930
